FAERS Safety Report 8396026-6 (Version None)
Quarter: 2012Q2

REPORT INFORMATION
  Report Type: 
  Country: None (occurrence: None)
  Receive Date: 20120530
  Receipt Date: 20120523
  Transmission Date: 20120825
  Serious: Yes (Other)
  Sender: FDA-Public Use
  Company Number: AR-ROCHE-1072986

PATIENT
  Sex: Female

DRUGS (3)
  1. XOLAIR [Suspect]
     Indication: BRONCHIECTASIS
  2. XOLAIR [Suspect]
     Indication: ASTHMA
     Dates: start: 20101015
  3. XOLAIR [Suspect]
     Indication: HYPERSENSITIVITY

REACTIONS (8)
  - CHOKING [None]
  - PYREXIA [None]
  - DYSPNOEA [None]
  - INCREASED UPPER AIRWAY SECRETION [None]
  - ASTHENIA [None]
  - DISCOMFORT [None]
  - BRONCHITIS [None]
  - ASTHMA [None]
